FAERS Safety Report 9781046 (Version 1)
Quarter: 2013Q4

REPORT INFORMATION
  Report Type: Spontaneous
  Country: GB (occurrence: GB)
  Receive Date: 20131224
  Receipt Date: 20131224
  Transmission Date: 20140711
  Serious: Yes (Disabling)
  Sender: FDA-Public Use
  Company Number: GB-ASTRAZENECA-2013SE91729

PATIENT
  Age: 75 Year
  Sex: Female
  Weight: 85 kg

DRUGS (9)
  1. FELODIPINE [Suspect]
     Route: 048
     Dates: start: 20131104, end: 20131202
  2. CALCIPOTRIOL [Concomitant]
     Dates: start: 20130828, end: 20130925
  3. CO-DYDRAMOL [Concomitant]
     Dates: start: 20130910, end: 20131005
  4. CO-DYDRAMOL [Concomitant]
     Dates: start: 20131104, end: 20131129
  5. DOUBLEBASE [Concomitant]
     Dates: start: 20130522
  6. E45 [Concomitant]
     Dates: start: 20131031, end: 20131128
  7. IRBESARTAN [Concomitant]
     Dates: start: 20130730, end: 20131008
  8. IRBESARTAN [Concomitant]
     Dates: start: 20131104, end: 20131202
  9. PIMECROLIMUS [Concomitant]
     Dates: start: 20131031, end: 20131128

REACTIONS (4)
  - Condition aggravated [Recovered/Resolved]
  - Gastrooesophageal reflux disease [Recovered/Resolved]
  - Arthralgia [Recovered/Resolved]
  - Malaise [Recovered/Resolved]
